FAERS Safety Report 26061827 (Version 2)
Quarter: 2025Q4

REPORT INFORMATION
  Report Type: Report from Study
  Country: US (occurrence: US)
  Receive Date: 20251118
  Receipt Date: 20251208
  Transmission Date: 20260118
  Serious: Yes (Other)
  Sender: ABBVIE
  Company Number: US-ABBVIE-6549683

PATIENT
  Age: 69 Year
  Sex: Female
  Weight: 85 kg

DRUGS (2)
  1. SKYRIZI [Suspect]
     Active Substance: RISANKIZUMAB-RZAA
     Indication: Crohn^s disease
     Dosage: FORM STRENGTH 360MG / 2.4ML
     Route: 058
     Dates: start: 202308
  2. PENTASA [Concomitant]
     Active Substance: MESALAMINE
     Indication: Product used for unknown indication
     Dosage: FORM STRENGTH:500 MILLIGRAM

REACTIONS (4)
  - Breast cancer female [Not Recovered/Not Resolved]
  - Breast architectural distortion [Not Recovered/Not Resolved]
  - Contusion [Recovering/Resolving]
  - Breast tenderness [Recovering/Resolving]

NARRATIVE: CASE EVENT DATE: 20250901
